FAERS Safety Report 16083633 (Version 10)
Quarter: 2019Q3

REPORT INFORMATION
  Report Type: Report from Study
  Country: GB (occurrence: GB)
  Receive Date: 20190318
  Receipt Date: 20190920
  Transmission Date: 20191004
  Serious: Yes (Hospitalization)
  Sender: FDA-Public Use
  Company Number: GB-EISAI MEDICAL RESEARCH-EC-2019-050471

PATIENT
  Age: 17 Year
  Sex: Female
  Weight: 50.9 kg

DRUGS (32)
  1. MOVICOL [Concomitant]
     Active Substance: POLYETHYLENE GLYCOL 3350\POTASSIUM CHLORIDE\SODIUM BICARBONATE\SODIUM CHLORIDE
  2. LORAZEPAM. [Concomitant]
     Active Substance: LORAZEPAM
  3. ONDANSETRAN [Concomitant]
     Active Substance: ONDANSETRON HYDROCHLORIDE
  4. FLUCONAZOLE. [Concomitant]
     Active Substance: FLUCONAZOLE
  5. SERTRALINE [Suspect]
     Active Substance: SERTRALINE HYDROCHLORIDE
     Indication: ANXIETY
     Route: 048
     Dates: end: 20190110
  6. CYCLIZINE [Concomitant]
     Active Substance: CYCLIZINE
  7. PEPTAC [Concomitant]
     Active Substance: RANITIDINE HYDROCHLORIDE
  8. NORTHISTERONE [Concomitant]
  9. CETIRIZINE [Concomitant]
     Active Substance: CETIRIZINE HYDROCHLORIDE
  10. LEVOTHYROXINE. [Concomitant]
     Active Substance: LEVOTHYROXINE
  11. LENVATINIB [Suspect]
     Active Substance: LENVATINIB
     Route: 048
     Dates: start: 20190809
  12. IFOSFAMIDE. [Suspect]
     Active Substance: IFOSFAMIDE
     Indication: OSTEOSARCOMA RECURRENT
     Route: 041
     Dates: start: 20181204, end: 20190314
  13. PARACETAMOL [Concomitant]
     Active Substance: ACETAMINOPHEN
  14. SODIUM PICOSULPHATE [Concomitant]
     Active Substance: SODIUM PICOSULFATE
  15. CANNABIS OIL [Concomitant]
     Active Substance: CANNABIS SATIVA SEED OIL
  16. LENVATINIB [Suspect]
     Active Substance: LENVATINIB
     Route: 048
     Dates: start: 20190312, end: 20190322
  17. LENVATINIB [Suspect]
     Active Substance: LENVATINIB
     Route: 048
     Dates: start: 20190523, end: 20190805
  18. CHLORPHENAMINE [Concomitant]
     Active Substance: CHLORPHENIRAMINE MALEATE
  19. LENVATINIB [Suspect]
     Active Substance: LENVATINIB
     Route: 048
     Dates: start: 20190325, end: 20190424
  20. MORPHINE [Concomitant]
     Active Substance: MORPHINE
  21. OMEPRAZOLE. [Concomitant]
     Active Substance: OMEPRAZOLE
  22. SERTRALINE [Suspect]
     Active Substance: SERTRALINE HYDROCHLORIDE
     Route: 048
     Dates: start: 20190128
  23. LEVOMEPROMAZINE [Concomitant]
     Active Substance: LEVOMEPROMAZINE
  24. ANTACID OXETACAINE [Concomitant]
  25. LENVATINIB [Suspect]
     Active Substance: LENVATINIB
     Indication: OSTEOSARCOMA RECURRENT
     Route: 048
     Dates: start: 20181204, end: 20190131
  26. LENVATINIB [Suspect]
     Active Substance: LENVATINIB
     Route: 048
     Dates: start: 20190204, end: 20190307
  27. LENVATINIB [Suspect]
     Active Substance: LENVATINIB
     Route: 048
     Dates: start: 20190428, end: 20190517
  28. ETOPOSIDE. [Suspect]
     Active Substance: ETOPOSIDE
     Indication: OSTEOSARCOMA RECURRENT
     Route: 041
     Dates: start: 20181204, end: 20190314
  29. RANITIDINE. [Concomitant]
     Active Substance: RANITIDINE
  30. COTRIMOXAZOLE [Concomitant]
     Active Substance: SULFAMETHOXAZOLE\TRIMETHOPRIM
  31. SEVREDOL [Concomitant]
     Active Substance: MORPHINE
  32. HYDROCORTISONE. [Concomitant]
     Active Substance: HYDROCORTISONE

REACTIONS (8)
  - Gastroenteritis [Recovered/Resolved]
  - Diarrhoea [Recovered/Resolved]
  - Febrile neutropenia [Recovered/Resolved]
  - Epistaxis [Recovered/Resolved]
  - Allergic transfusion reaction [Recovered/Resolved]
  - Vomiting [Recovered/Resolved]
  - Hypotension [Recovered/Resolved]
  - Abdominal pain [Recovering/Resolving]

NARRATIVE: CASE EVENT DATE: 20190110
